FAERS Safety Report 6670873-0 (Version None)
Quarter: 2010Q2

REPORT INFORMATION
  Report Type: 
  Country: None (occurrence: None)
  Receive Date: 20100407
  Receipt Date: 20100325
  Transmission Date: 20101027
  Serious: Yes (Other)
  Sender: FDA-Public Use
  Company Number: IE-MEDIMMUNE-MEDI-0010766

PATIENT
  Sex: Female
  Weight: 8.5 kg

DRUGS (4)
  1. SYNAGIS [Suspect]
     Indication: RESPIRATORY SYNCYTIAL VIRUS INFECTION
     Dates: start: 20091015, end: 20091015
  2. SYNAGIS [Suspect]
     Dates: start: 20100201, end: 20100201
  3. FERROUS SULFATE TAB [Concomitant]
     Route: 048
  4. KAPSOVIT [Concomitant]

REACTIONS (1)
  - LOWER RESPIRATORY TRACT INFECTION [None]
